FAERS Safety Report 8217659-3 (Version None)
Quarter: 2012Q1

REPORT INFORMATION
  Report Type: 
  Country: None (occurrence: None)
  Receive Date: 20120314
  Receipt Date: 20120227
  Transmission Date: 20120608
  Serious: Yes (Life-Threatening, Disabling)
  Sender: FDA-Public Use
  Company Number: THQ2012A01704

PATIENT
  Age: 73 Year
  Sex: Female

DRUGS (14)
  1. GLIPIZIDE [Concomitant]
  2. DILTIAZEM HCL [Concomitant]
  3. PRAMIPEXOLE DIHYDROCHLORIDE [Concomitant]
  4. GLUCOBAY [Concomitant]
  5. STATIN (NYSTATIN) [Concomitant]
  6. DIAMICRON (GLICLAZIDE) [Concomitant]
  7. ACTOS [Suspect]
     Indication: DIABETES MELLITUS
     Dosage: 15 MG (15 MG, 1 IN 1 D) PER ORAL
     Route: 048
     Dates: start: 20080501
  8. ANTIBIOTIC (ANTIBIOTICS) [Concomitant]
  9. CARDIPINE (NIFEDIPINE) [Concomitant]
  10. MADOPAR (LEVODOPA, BENSERAZIDE) [Concomitant]
  11. UTMOS (PIOGLITAZONE HYDROCHLORIDE) [Concomitant]
  12. ERYTHROPOETIN INJECTION (EPOETIN ALFA) [Concomitant]
  13. AMARYL [Concomitant]
  14. JANUVIA [Concomitant]

REACTIONS (4)
  - CYSTITIS NONINFECTIVE [None]
  - ANAEMIA [None]
  - BLADDER NEOPLASM [None]
  - RENAL FAILURE CHRONIC [None]
